FAERS Safety Report 4552685-7 (Version None)
Quarter: 2005Q1

REPORT INFORMATION
  Report Type: 
  Country: None (occurrence: None)
  Receive Date: 20050114
  Receipt Date: 20040910
  Transmission Date: 20050727
  Serious: Yes (Death)
  Sender: FDA-Public Use
  Company Number: PHEH2004US09749

PATIENT
  Age: 56 Year
  Sex: Male

DRUGS (4)
  1. TEMODAR [Suspect]
     Route: 048
     Dates: start: 20040201
  2. TEMODAR [Suspect]
     Dosage: 400 MG, QHS X 5DAYS
     Dates: start: 20040501, end: 20040501
  3. TEMODAR [Suspect]
     Dosage: 500 MG, QHS
     Dates: start: 20040601, end: 20040601
  4. TEGRETOL [Suspect]
     Dosage: 400 MG AM + 200 MG LUNCHTIME
     Route: 048

REACTIONS (3)
  - BRAIN CANCER METASTATIC [None]
  - DEATH [None]
  - DRUG INTERACTION [None]
